FAERS Safety Report 14205079 (Version 1)
Quarter: 2017Q4

REPORT INFORMATION
  Report Type: Spontaneous
  Country: US (occurrence: None)
  Receive Date: 20171117
  Receipt Date: 20171117
  Transmission Date: 20180321
  Serious: Yes (Death)
  Sender: FDA-Public Use
  Company Number: None

PATIENT
  Age: 69 Year
  Sex: Male

DRUGS (1)
  1. REVLIMID [Suspect]
     Active Substance: LENALIDOMIDE
     Indication: PLASMA CELL MYELOMA
     Route: 048
     Dates: start: 20150625, end: 20150628

REACTIONS (6)
  - Hiccups [None]
  - Heart rate increased [None]
  - Malaise [None]
  - Multiple organ dysfunction syndrome [None]
  - Sepsis [None]
  - Pancytopenia [None]

NARRATIVE: CASE EVENT DATE: 20150720
